FAERS Safety Report 24603112 (Version 2)
Quarter: 2024Q4

REPORT INFORMATION
  Report Type: Report from Study
  Country: US (occurrence: US)
  Receive Date: 20241111
  Receipt Date: 20241127
  Transmission Date: 20250115
  Serious: Yes (Other)
  Sender: UPSHER SMITH LABORATORIES
  Company Number: US-UPSHER-SMITH LABORATORIES, LLC-20241000210

PATIENT
  Age: 28 Year
  Sex: Male

DRUGS (4)
  1. ISOTRETINOIN [Suspect]
     Active Substance: ISOTRETINOIN
     Indication: Acne
     Dosage: 80 MG, DAILY (2 CAPSULES OF 40 MG EVERYDAY)
     Route: 065
     Dates: start: 20240729, end: 20241031
  2. ISOTRETINOIN [Suspect]
     Active Substance: ISOTRETINOIN
     Dosage: 30 MG
     Route: 065
  3. TESTOSTERONE [Concomitant]
     Active Substance: TESTOSTERONE
     Indication: Medical anabolic therapy
     Dosage: UNK
     Route: 065
  4. CREATINE [Concomitant]
     Active Substance: CREATINE
     Indication: Medical anabolic therapy
     Dosage: UNK
     Route: 065

REACTIONS (5)
  - Depression [Unknown]
  - Suicidal ideation [Unknown]
  - Visual impairment [Unknown]
  - Dizziness [Unknown]
  - Hepatic enzyme increased [Unknown]

NARRATIVE: CASE EVENT DATE: 20241028
